FAERS Safety Report 6429338-3 (Version None)
Quarter: 2009Q4

REPORT INFORMATION
  Report Type: 
  Country: None (occurrence: None)
  Receive Date: 20091105
  Receipt Date: 20091021
  Transmission Date: 20100525
  Serious: Yes (Other)
  Sender: FDA-Public Use
  Company Number: JP-GENENTECH-293593

PATIENT
  Age: 63 Year
  Sex: Male

DRUGS (6)
  1. AVASTIN [Suspect]
     Indication: RECTAL CANCER RECURRENT
     Dosage: UNK
     Route: 042
     Dates: start: 20080101
  2. ELPLAT [Suspect]
     Indication: RECTAL CANCER RECURRENT
     Dosage: UNK
     Route: 042
     Dates: start: 20070401, end: 20070801
  3. FLUOROURACIL [Suspect]
     Indication: RECTAL CANCER RECURRENT
     Dosage: UNK
     Route: 040
     Dates: start: 20070401, end: 20070801
  4. FLUOROURACIL [Suspect]
     Dosage: UNK
     Route: 041
     Dates: start: 20070401, end: 20070801
  5. IRINOTECAN HYDROCHLORIDE [Suspect]
     Indication: RECTAL CANCER RECURRENT
     Dosage: UNK
     Route: 042
     Dates: start: 20070801
  6. CALCIUM LEVOFOLINATE [Suspect]
     Indication: RECTAL CANCER RECURRENT
     Dosage: UNK
     Route: 042
     Dates: start: 20070401, end: 20070801

REACTIONS (3)
  - DUODENAL ULCER HAEMORRHAGE [None]
  - HAEMOGLOBIN DECREASED [None]
  - MELAENA [None]
